FAERS Safety Report 14344980 (Version 1)
Quarter: 2018Q1

REPORT INFORMATION
  Report Type: Spontaneous
  Country: US (occurrence: US)
  Receive Date: 20180103
  Receipt Date: 20180103
  Transmission Date: 20180509
  Serious: Yes (Hospitalization, Other)
  Sender: FDA-Public Use
  Company Number: US-VISTAPHARM, INC.-VER201712-001621

PATIENT
  Age: 76 Year
  Sex: Female

DRUGS (32)
  1. QUETIAPINE. [Suspect]
     Active Substance: QUETIAPINE
     Indication: MANIA
  2. QUETIAPINE. [Suspect]
     Active Substance: QUETIAPINE
  3. ASPIRIN. [Suspect]
     Active Substance: ASPIRIN
     Indication: PRODUCT USED FOR UNKNOWN INDICATION
  4. LORATADINE. [Concomitant]
     Active Substance: LORATADINE
  5. OMEPRAZOLE. [Concomitant]
     Active Substance: OMEPRAZOLE
  6. TRIMETHOPRIM. [Concomitant]
     Active Substance: TRIMETHOPRIM
     Indication: URINARY TRACT INFECTION
  7. VALPROIC ACID. [Suspect]
     Active Substance: VALPROIC ACID
  8. VALPROIC ACID. [Suspect]
     Active Substance: VALPROIC ACID
  9. VALPROIC ACID. [Suspect]
     Active Substance: VALPROIC ACID
     Dosage: ONE  MONTH  FOLLOWING  THIS  THIRD  HYPOTHERMIA
  10. VALPROIC ACID. [Suspect]
     Active Substance: VALPROIC ACID
  11. VALPROIC ACID. [Suspect]
     Active Substance: VALPROIC ACID
  12. VALPROIC ACID. [Suspect]
     Active Substance: VALPROIC ACID
     Dosage: ONE  MONTH  FOLLOWING  THIS  THIRD  HYPOTHERMIA
  13. QUETIAPINE. [Suspect]
     Active Substance: QUETIAPINE
  14. CIPROFLOXACIN. [Concomitant]
     Active Substance: CIPROFLOXACIN
     Indication: URINARY TRACT INFECTION
  15. LEVOTHYROXINE. [Concomitant]
     Active Substance: LEVOTHYROXINE
  16. SULFAMETHOXAZOLE [Concomitant]
     Active Substance: SULFAMETHOXAZOLE
     Indication: URINARY TRACT INFECTION
  17. VALPROIC ACID. [Suspect]
     Active Substance: VALPROIC ACID
     Dosage: ONE  MONTH  FOLLOWING  THIS  THIRD  HYPOTHERMIA
  18. QUETIAPINE. [Suspect]
     Active Substance: QUETIAPINE
  19. FUROSEMIDE. [Concomitant]
     Active Substance: FUROSEMIDE
  20. VALPROIC ACID. [Suspect]
     Active Substance: VALPROIC ACID
     Indication: MANIA
  21. OLANZAPINE. [Suspect]
     Active Substance: OLANZAPINE
  22. OXCARBAZEPINE. [Suspect]
     Active Substance: OXCARBAZEPINE
     Indication: AFFECTIVE DISORDER
  23. TAMOXIFEN [Concomitant]
     Active Substance: TAMOXIFEN
     Indication: MANIA
  24. OLANZAPINE. [Suspect]
     Active Substance: OLANZAPINE
     Indication: MANIA
  25. AMLODIPINE [Concomitant]
     Active Substance: AMLODIPINE BESYLATE
  26. OLANZAPINE. [Suspect]
     Active Substance: OLANZAPINE
  27. LITHIUM. [Concomitant]
     Active Substance: LITHIUM
     Indication: MANIA
  28. METOPROLOL. [Concomitant]
     Active Substance: METOPROLOL
  29. QUETIAPINE. [Suspect]
     Active Substance: QUETIAPINE
  30. QUETIAPINE. [Suspect]
     Active Substance: QUETIAPINE
  31. LITHIUM. [Concomitant]
     Active Substance: LITHIUM
  32. LORAZEPAM. [Concomitant]
     Active Substance: LORAZEPAM
     Indication: MANIA

REACTIONS (2)
  - Hypothermia [Recovered/Resolved]
  - Drug interaction [Unknown]
